FAERS Safety Report 16821244 (Version 2)
Quarter: 2019Q4

REPORT INFORMATION
  Report Type: Report from Study
  Country: US (occurrence: US)
  Receive Date: 20190918
  Receipt Date: 20191108
  Transmission Date: 20200122
  Serious: Yes (Death)
  Sender: FDA-Public Use
  Company Number: US-ROCHE-2405087

PATIENT
  Sex: Female

DRUGS (1)
  1. ACTEMRA [Suspect]
     Active Substance: TOCILIZUMAB
     Indication: TEMPORAL ARTERITIS
     Dosage: INJECT 162MG SUBCUTANEOUSLY EVERY WEEK
     Route: 058

REACTIONS (1)
  - Death [Fatal]
